FAERS Safety Report 5718720-5 (Version None)
Quarter: 2008Q2

REPORT INFORMATION
  Report Type: 
  Country: None (occurrence: None)
  Receive Date: 20080425
  Receipt Date: 20080415
  Transmission Date: 20081010
  Serious: Yes (Hospitalization, Other)
  Sender: FDA-Public Use
  Company Number: US-PFIZER INC-2008033778

PATIENT
  Sex: Female
  Weight: 61 kg

DRUGS (5)
  1. LYRICA [Suspect]
     Indication: FIBROMYALGIA
     Route: 048
     Dates: start: 20070901, end: 20080401
  2. LYRICA [Suspect]
     Indication: NEURALGIA
  3. XANAX [Concomitant]
  4. CYMBALTA [Concomitant]
  5. ALBUTEROL [Concomitant]

REACTIONS (9)
  - CHEST PAIN [None]
  - DECREASED APPETITE [None]
  - DEPRESSED MOOD [None]
  - HYPOAESTHESIA [None]
  - LETHARGY [None]
  - MUSCULAR WEAKNESS [None]
  - PARAESTHESIA [None]
  - RASH [None]
  - WEIGHT INCREASED [None]
